FAERS Safety Report 8589205-6 (Version None)
Quarter: 2012Q3

REPORT INFORMATION
  Report Type: 
  Country: None (occurrence: None)
  Receive Date: 20120813
  Receipt Date: 20120810
  Transmission Date: 20120928
  Serious: Yes (Other)
  Sender: FDA-Public Use
  Company Number: US-JNJFOC-20120609133

PATIENT
  Age: 62 Year
  Sex: Female

DRUGS (2)
  1. USTEKINUMAB [Suspect]
     Indication: PRODUCT USED FOR UNKNOWN INDICATION
     Route: 058
  2. RADIATION THERAPY NOS [Concomitant]
     Route: 065

REACTIONS (9)
  - SUBCUTANEOUS NODULE [None]
  - DRUG INEFFECTIVE [None]
  - ANAPLASTIC LARGE CELL LYMPHOMA T- AND NULL-CELL TYPES [None]
  - CONFUSIONAL STATE [None]
  - PARALYSIS [None]
  - METASTASES TO MENINGES [None]
  - DERMATITIS PSORIASIFORM [None]
  - ARTHRALGIA [None]
  - VISION BLURRED [None]
